FAERS Safety Report 14433105 (Version 2)
Quarter: 2019Q4

REPORT INFORMATION
  Report Type: Spontaneous
  Country: JP (occurrence: JP)
  Receive Date: 20180124
  Receipt Date: 20191126
  Transmission Date: 20200122
  Serious: Yes (Hospitalization, Other)
  Sender: FDA-Public Use
  Company Number: JP-GILEAD-2018-0316309

PATIENT
  Age: 71 Year
  Sex: Female

DRUGS (7)
  1. MAGNESIUM OXIDE. [Concomitant]
     Active Substance: MAGNESIUM OXIDE
  2. COPEGUS [Concomitant]
     Active Substance: RIBAVIRIN
     Indication: HEPATITIS C
     Dosage: 600 MG, UNK
     Route: 065
  3. PARIET [Concomitant]
     Active Substance: RABEPRAZOLE SODIUM
  4. FERROMIA [Concomitant]
     Active Substance: SODIUM FERROUS CITRATE
  5. GASMOTIN [Concomitant]
     Active Substance: MOSAPRIDE CITRATE
  6. SOVALDI [Suspect]
     Active Substance: SOFOSBUVIR
     Indication: HEPATITIS C
     Dosage: 400 MG, UNK
     Route: 065
  7. LENDORMIN [Concomitant]
     Active Substance: BROTIZOLAM

REACTIONS (4)
  - Hepatic encephalopathy [Unknown]
  - Tremor [Unknown]
  - Dizziness [Unknown]
  - Ammonia increased [Unknown]
